FAERS Safety Report 9720009 (Version 3)
Quarter: 2013Q4

REPORT INFORMATION
  Report Type: Spontaneous
  Country: DE (occurrence: DE)
  Receive Date: 20131128
  Receipt Date: 20131224
  Transmission Date: 20140711
  Serious: Yes (Hospitalization, Other)
  Sender: FDA-Public Use
  Company Number: DE-THROMBOGENICS NV-JET-2013-314

PATIENT
  Sex: Female

DRUGS (1)
  1. JETREA [Suspect]
     Indication: VITREOUS ADHESIONS
     Dosage: 0.125 MG, ONE TIME DOSE
     Route: 031
     Dates: start: 20131104, end: 20131104

REACTIONS (2)
  - Visual acuity reduced [Recovering/Resolving]
  - Optic neuropathy [Recovering/Resolving]
